FAERS Safety Report 8174507-8 (Version None)
Quarter: 2012Q1

REPORT INFORMATION
  Report Type: 
  Country: None (occurrence: None)
  Receive Date: 20120229
  Receipt Date: 20120224
  Transmission Date: 20120608
  Serious: Yes (Hospitalization)
  Sender: FDA-Public Use
  Company Number: IT-ABBOTT-11P-083-0856948-00

PATIENT
  Age: 34 Year
  Sex: Male

DRUGS (5)
  1. DEPAKENE [Suspect]
     Indication: AFFECTIVE DISORDER
     Dosage: 750MG; DAILY
     Route: 048
  2. RISPERDAL [Concomitant]
     Indication: PRODUCT USED FOR UNKNOWN INDICATION
  3. PROMAZINE HYDROCHLORIDE [Concomitant]
     Indication: PRODUCT USED FOR UNKNOWN INDICATION
  4. DEPAKENE [Suspect]
     Dosage: DAILY DOSE: 30 DOSAGE FORM; UNKNOWN
     Route: 048
     Dates: start: 20110405, end: 20110405
  5. ALCOHOL [Suspect]
     Indication: INTENTIONAL SELF-INJURY

REACTIONS (3)
  - ALCOHOL ABUSE [None]
  - INTENTIONAL SELF-INJURY [None]
  - INTENTIONAL OVERDOSE [None]
